FAERS Safety Report 5076142-7 (Version None)
Quarter: 2006Q3

REPORT INFORMATION
  Report Type: 
  Country: None (occurrence: None)
  Receive Date: 20060725
  Receipt Date: 20060413
  Transmission Date: 20061208
  Serious: No
  Sender: FDA-Public Use
  Company Number: 200610735BWH

PATIENT
  Age: 74 Year
  Sex: Female
  Weight: 90.7194 kg

DRUGS (3)
  1. NEXAVAR [Suspect]
     Indication: METASTASES TO LUNG
     Dosage: 400 MG, BID, ORAL
     Route: 048
     Dates: start: 20060203
  2. NEXAVAR [Suspect]
     Indication: RENAL CELL CARCINOMA STAGE UNSPECIFIED
     Dosage: 400 MG, BID, ORAL
     Route: 048
     Dates: start: 20060203
  3. TETRACYCLINE [Concomitant]

REACTIONS (6)
  - ABDOMINAL PAIN UPPER [None]
  - ALOPECIA [None]
  - ASTHENIA [None]
  - MALAISE [None]
  - NAUSEA [None]
  - RASH GENERALISED [None]
